FAERS Safety Report 6201858-6 (Version None)
Quarter: 2009Q2

REPORT INFORMATION
  Report Type: 
  Country: None (occurrence: None)
  Receive Date: 20090526
  Receipt Date: 20090515
  Transmission Date: 20091009
  Serious: Yes (Other)
  Sender: FDA-Public Use
  Company Number: GB-ELI_LILLY_AND_COMPANY-GB200905003161

PATIENT
  Age: 51 Year
  Sex: Female
  Weight: 88.8 kg

DRUGS (4)
  1. BYETTA [Suspect]
     Dosage: 5 UG, UNK
     Route: 058
     Dates: start: 20090410, end: 20090415
  2. GLICLAZIDE [Concomitant]
     Dosage: 160 MG, 2/D
     Route: 048
  3. LISINOPRIL [Concomitant]
     Indication: HYPERTENSION
     Dosage: 2.5 MG, DAILY (1/D)
     Route: 048
  4. METFORMIN HCL [Concomitant]
     Dosage: 1 G, 2/D
     Route: 048

REACTIONS (3)
  - ABDOMINAL PAIN UPPER [None]
  - BACK PAIN [None]
  - PANCREATITIS [None]
